FAERS Safety Report 4514351-3 (Version None)
Quarter: 2004Q4

REPORT INFORMATION
  Report Type: 
  Country: None (occurrence: None)
  Receive Date: 20041124
  Receipt Date: 20041109
  Transmission Date: 20050328
  Serious: Yes (Hospitalization, Other)
  Sender: FDA-Public Use
  Company Number: FR_040904889

PATIENT
  Age: 44 Year
  Sex: Female
  Weight: 150 kg

DRUGS (1)
  1. ZYPREXA [Suspect]
     Indication: BIPOLAR DISORDER
     Dosage: 7.5 MG DAY
     Dates: start: 19980101

REACTIONS (5)
  - BREAST CANCER FEMALE [None]
  - C-REACTIVE PROTEIN INCREASED [None]
  - LEUKOPENIA [None]
  - PYREXIA [None]
  - SEPSIS SYNDROME [None]
